FAERS Safety Report 12139891 (Version 1)
Quarter: 2016Q1

REPORT INFORMATION
  Report Type: Spontaneous
  Country: US (occurrence: None)
  Receive Date: 20160302
  Receipt Date: 20160302
  Transmission Date: 20160526
  Serious: No
  Sender: FDA-Public Use
  Company Number: None

PATIENT
  Age: 70 Year
  Sex: Female

DRUGS (7)
  1. MAXZIDE [Concomitant]
     Active Substance: HYDROCHLOROTHIAZIDE\TRIAMTERENE
  2. TENORMIN [Concomitant]
     Active Substance: ATENOLOL
  3. AMPYRA [Suspect]
     Active Substance: DALFAMPRIDINE
     Indication: MULTIPLE SCLEROSIS
     Route: 048
     Dates: start: 201410
  4. CALCIUM+VITD [Concomitant]
  5. SINEMET [Concomitant]
     Active Substance: CARBIDOPA\LEVODOPA
  6. OXYBUTYNIN [Concomitant]
     Active Substance: OXYBUTYNIN
  7. NORPRAMIN [Concomitant]
     Active Substance: DESIPRAMINE HYDROCHLORIDE

REACTIONS (1)
  - Urinary tract infection [None]

NARRATIVE: CASE EVENT DATE: 20160127
